FAERS Safety Report 7308659-6 (Version None)
Quarter: 2011Q1

REPORT INFORMATION
  Report Type: 
  Country: None (occurrence: None)
  Receive Date: 20110223
  Receipt Date: 20110215
  Transmission Date: 20110831
  Serious: Yes (Hospitalization)
  Sender: FDA-Public Use
  Company Number: JP-MERCK-1102USA02067

PATIENT
  Age: 63 Year
  Sex: Male

DRUGS (1)
  1. EMEND [Suspect]
     Indication: PROPHYLAXIS OF NAUSEA AND VOMITING
     Route: 048

REACTIONS (4)
  - DUODENAL ULCER [None]
  - DECREASED APPETITE [None]
  - NAUSEA [None]
  - MALAISE [None]
